FAERS Safety Report 6206948-X (Version None)
Quarter: 2009Q2

REPORT INFORMATION
  Report Type: 
  Country: None (occurrence: None)
  Receive Date: 20090528
  Receipt Date: 20090520
  Transmission Date: 20091009
  Serious: Yes (Other)
  Sender: FDA-Public Use
  Company Number: B0572509A

PATIENT
  Sex: Female
  Weight: 72 kg

DRUGS (1)
  1. MALANIL [Suspect]
     Indication: MALARIA PROPHYLAXIS
     Dosage: 1TAB PER DAY
     Route: 048
     Dates: start: 20080629, end: 20080702

REACTIONS (1)
  - DIPLOPIA [None]
